FAERS Safety Report 8006591-6 (Version None)
Quarter: 2011Q4

REPORT INFORMATION
  Report Type: 
  Country: None (occurrence: None)
  Receive Date: 20111227
  Receipt Date: 20111214
  Transmission Date: 20120403
  Serious: Yes (Other)
  Sender: FDA-Public Use
  Company Number: FR-ELI_LILLY_AND_COMPANY-FR201112004424

PATIENT
  Age: 70 Year
  Sex: Female

DRUGS (2)
  1. PROZAC [Suspect]
     Dosage: 20 MG, UNK
     Route: 048
  2. DULOXETINE HYDROCHLORIDE [Suspect]
     Dosage: 50 MG, UNK
     Route: 048

REACTIONS (1)
  - BRIEF PSYCHOTIC DISORDER WITH MARKED STRESSORS [None]
